FAERS Safety Report 20577488 (Version 1)
Quarter: 2022Q1

REPORT INFORMATION
  Report Type: Spontaneous
  Country: None (occurrence: US)
  Receive Date: 20220310
  Receipt Date: 20220310
  Transmission Date: 20220423
  Serious: No
  Sender: FDA-Public Use
  Company Number: US-Acacia Pharma Limited-2126634

PATIENT

DRUGS (1)
  1. BARHEMSYS [Suspect]
     Active Substance: AMISULPRIDE
     Indication: Product used for unknown indication
     Route: 042
     Dates: start: 2022

REACTIONS (1)
  - Administration site extravasation [Unknown]

NARRATIVE: CASE EVENT DATE: 20220101
